FAERS Safety Report 12586747 (Version 3)
Quarter: 2017Q1

REPORT INFORMATION
  Report Type: Report from Study
  Country: CA (occurrence: CA)
  Receive Date: 20160725
  Receipt Date: 20170227
  Transmission Date: 20170428
  Serious: Yes (Hospitalization)
  Sender: FDA-Public Use
  Company Number: CA-ROCHE-1698726

PATIENT
  Age: 41 Year
  Sex: Male
  Weight: 73.2 kg

DRUGS (9)
  1. BEVACIZUMAB [Suspect]
     Active Substance: BEVACIZUMAB
     Indication: RENAL CELL CARCINOMA
     Dosage: DATE OF MOST RECENT DOSE 08/JAN/2016
     Route: 042
     Dates: start: 20160108
  2. LEVONOX [Concomitant]
     Active Substance: ENOXAPARIN
     Dosage: INDICATION: POST SURGERY
     Route: 058
  3. ATEZOLIZUMAB [Suspect]
     Active Substance: ATEZOLIZUMAB
     Indication: RENAL CELL CARCINOMA
     Dosage: DATE OF MOST RECENT DOSE 08/JAN/2016
     Route: 042
     Dates: start: 20160108
  4. PMS-HYDROMORPHONE [Concomitant]
     Active Substance: HYDROMORPHONE HYDROCHLORIDE
     Indication: PAIN
     Route: 048
  5. MORPHINE [Concomitant]
     Active Substance: MORPHINE
     Indication: PAIN
     Route: 048
  6. LORAZEPAM. [Concomitant]
     Active Substance: LORAZEPAM
     Indication: INSOMNIA
     Route: 048
  7. DALTEPARIN [Concomitant]
     Active Substance: DALTEPARIN
     Indication: PROPHYLAXIS
     Dosage: INDICATION: FOR SUSPECTED PULMONARY EMBOLISM
     Route: 058
     Dates: start: 20151219, end: 20151220
  8. ENOXAPARIN [Concomitant]
     Active Substance: ENOXAPARIN
     Indication: PROPHYLAXIS
     Dosage: INDICATION: FOR SUSPECTED PULMONARY EMBOLISM
     Route: 058
     Dates: start: 20151219, end: 20151220
  9. ONDANSETRON [Concomitant]
     Active Substance: ONDANSETRON
     Indication: NAUSEA
     Route: 048
     Dates: start: 20160130

REACTIONS (1)
  - Cytokine release syndrome [Recovered/Resolved]

NARRATIVE: CASE EVENT DATE: 20160118
